FAERS Safety Report 7902868-0 (Version None)
Quarter: 2011Q4

REPORT INFORMATION
  Report Type: 
  Country: None (occurrence: None)
  Receive Date: 20111104
  Receipt Date: 20111027
  Transmission Date: 20120403
  Serious: Yes (Other)
  Sender: FDA-Public Use
  Company Number: 2011SP051093

PATIENT
  Age: 40 Year
  Sex: Male
  Weight: 76 kg

DRUGS (2)
  1. CLONAZEPAM [Concomitant]
  2. REMERON [Suspect]
     Indication: PRODUCT USED FOR UNKNOWN INDICATION
     Dosage: 15 MG;QD;PO
     Route: 048

REACTIONS (5)
  - ORAL PAIN [None]
  - CHILLS [None]
  - DIARRHOEA [None]
  - BLEPHAROSPASM [None]
  - MUSCLE TWITCHING [None]
